FAERS Safety Report 7469120-1 (Version None)
Quarter: 2011Q2

REPORT INFORMATION
  Report Type: 
  Country: None (occurrence: None)
  Receive Date: 20110510
  Receipt Date: 20110427
  Transmission Date: 20111010
  Serious: Yes (Hospitalization, Other)
  Sender: FDA-Public Use
  Company Number: SE-ELI_LILLY_AND_COMPANY-SE201104000318

PATIENT
  Age: 14 Year
  Sex: Female

DRUGS (8)
  1. STRATTERA [Suspect]
     Indication: ATTENTION DEFICIT/HYPERACTIVITY DISORDER
     Dosage: 40 MG, UNK
     Dates: start: 20071001, end: 20080201
  2. STRATTERA [Suspect]
     Dosage: 40 MG, UNK
     Dates: start: 20081001, end: 20081201
  3. STRATTERA [Suspect]
     Dosage: 50 MG, UNK
     Dates: start: 20081201, end: 20090101
  4. STRATTERA [Suspect]
     Dosage: 58 MG, UNK
     Dates: start: 20090101, end: 20090501
  5. LEVOTHYROXINE SODIUM [Concomitant]
     Indication: HYPOTHYROIDISM
     Dosage: 125 UG, UNK
     Dates: end: 20081001
  6. STRATTERA [Suspect]
     Dosage: 80 MG, UNK
     Dates: start: 20100201, end: 20101201
  7. STRATTERA [Suspect]
     Dosage: 60 MG, UNK
     Dates: start: 20090501, end: 20100201
  8. STRATTERA [Suspect]
     Dosage: 80 MG, UNK
     Dates: start: 20080201, end: 20081001

REACTIONS (4)
  - GRAND MAL CONVULSION [None]
  - CONVULSION [None]
  - BLINDNESS TRANSIENT [None]
  - HEADACHE [None]
